FAERS Safety Report 22343471 (Version 2)
Quarter: 2023Q2

REPORT INFORMATION
  Report Type: Spontaneous
  Country: GB (occurrence: GB)
  Receive Date: 20230519
  Receipt Date: 20230524
  Transmission Date: 20230721
  Serious: Yes (Hospitalization)
  Sender: FDA-Public Use
  Company Number: GB-MYLANLABS-2023M1048953

PATIENT
  Sex: Male

DRUGS (3)
  1. CLOZARIL [Suspect]
     Active Substance: CLOZAPINE
     Indication: Product used for unknown indication
     Dosage: 12.5 MILLIGRAM, QD (12.5MG ON)
     Route: 048
     Dates: start: 20210521, end: 20230128
  2. CLOZARIL [Suspect]
     Active Substance: CLOZAPINE
     Dosage: UNK
     Route: 048
     Dates: end: 20230213
  3. CLOZARIL [Suspect]
     Active Substance: CLOZAPINE
     Dosage: 12.5 MILLIGRAM, QD (12.5MG ON)
     Route: 048
     Dates: start: 20230303

REACTIONS (2)
  - Pyelonephritis [Unknown]
  - Therapy interrupted [Recovered/Resolved]
